FAERS Safety Report 17141194 (Version 5)
Quarter: 2020Q1

REPORT INFORMATION
  Report Type: Report from Study
  Country: IL (occurrence: IL)
  Receive Date: 20191211
  Receipt Date: 20200309
  Transmission Date: 20200409
  Serious: Yes (Hospitalization)
  Sender: FDA-Public Use
  Company Number: IL-IPSEN BIOPHARMACEUTICALS, INC.-2019-23756

PATIENT
  Age: 66 Year
  Sex: Female

DRUGS (10)
  1. SOMATULINE [Suspect]
     Active Substance: LANREOTIDE ACETATE
     Route: 058
     Dates: start: 20191124
  2. INHALER [Concomitant]
     Active Substance: UNSPECIFIED INGREDIENT
     Dosage: *2 (NOT SPECIFIED WHICH)
  3. CLONEX [Concomitant]
  4. ACTIVE CHARCOAL [Concomitant]
     Active Substance: ACTIVATED CHARCOAL
  5. CREON [Concomitant]
     Active Substance: PANCRELIPASE AMYLASE\PANCRELIPASE LIPASE\PANCRELIPASE PROTEASE
  6. SOMATULINE [Suspect]
     Active Substance: LANREOTIDE ACETATE
     Indication: NEUROENDOCRINE TUMOUR
     Dosage: SITE: BUTTOCKS
     Route: 058
     Dates: start: 20160709, end: 201806
  7. SOMATULINE [Suspect]
     Active Substance: LANREOTIDE ACETATE
     Route: 058
     Dates: start: 20180620, end: 201911
  8. IMODIUM [Concomitant]
     Active Substance: LOPERAMIDE HYDROCHLORIDE
  9. LOSEC [Concomitant]
     Active Substance: OMEPRAZOLE
  10. PROFEX [Concomitant]

REACTIONS (12)
  - Abdominal distension [Unknown]
  - Haemorrhage [Unknown]
  - Nausea [Recovered/Resolved]
  - Device breakage [Not Recovered/Not Resolved]
  - Iron deficiency [Unknown]
  - Off label use [Unknown]
  - Dyspnoea [Recovering/Resolving]
  - Alopecia [Unknown]
  - Diarrhoea [Recovering/Resolving]
  - Flatulence [Recovering/Resolving]
  - Pruritus [Not Recovered/Not Resolved]
  - Rash [Not Recovered/Not Resolved]

NARRATIVE: CASE EVENT DATE: 20160709
